FAERS Safety Report 9914537 (Version 1)
Quarter: 2014Q1

REPORT INFORMATION
  Report Type: Spontaneous
  Country: US (occurrence: US)
  Receive Date: 20140220
  Receipt Date: 20140220
  Transmission Date: 20141002
  Serious: No
  Sender: FDA-Public Use
  Company Number: US-BAYER-2014-019012

PATIENT
  Age: 70 Year
  Sex: Female
  Weight: 91 kg

DRUGS (5)
  1. MIDOL EXTENDED RELIEF CAPLET [Suspect]
     Indication: ABDOMINAL DISCOMFORT
     Dosage: 1 DF, UNK
     Route: 048
  2. ALEVE CAPLET [Suspect]
  3. CARBIDOPA [Concomitant]
  4. AMLODIPINE [Concomitant]
  5. JANUVIA [Concomitant]

REACTIONS (4)
  - Drug hypersensitivity [None]
  - Intentional drug misuse [None]
  - Pruritus [None]
  - Pruritus [Recovered/Resolved]
